FAERS Safety Report 9181739 (Version 1)
Quarter: 2013Q1

REPORT INFORMATION
  Report Type: Spontaneous
  Country: US (occurrence: US)
  Receive Date: 20130322
  Receipt Date: 20130322
  Transmission Date: 20140127
  Serious: Yes (Other)
  Sender: FDA-Public Use
  Company Number: US-JNJFOC-20130311309

PATIENT
  Sex: 0

DRUGS (1)
  1. DOXORUBICIN HYDROCHLORIDE [Suspect]
     Indication: SARCOMA
     Route: 042

REACTIONS (3)
  - Fatigue [Unknown]
  - Gastrooesophageal reflux disease [Unknown]
  - Off label use [Unknown]
